FAERS Safety Report 9170943 (Version 1)
Quarter: 2013Q1

REPORT INFORMATION
  Report Type: Spontaneous
  Country: US (occurrence: US)
  Receive Date: 20130319
  Receipt Date: 20130319
  Transmission Date: 20140127
  Serious: No
  Sender: FDA-Public Use
  Company Number: US-PFIZER INC-2013085144

PATIENT
  Age: 62 Year
  Sex: Male
  Weight: 87.08 kg

DRUGS (1)
  1. NEURONTIN [Suspect]
     Indication: BURNING SENSATION
     Dosage: 300 MG, 1X/DAY
     Route: 048

REACTIONS (4)
  - Somnolence [Recovered/Resolved]
  - Drug ineffective [Unknown]
  - Off label use [Unknown]
  - Intentional drug misuse [Unknown]
